FAERS Safety Report 5131690-6 (Version None)
Quarter: 2006Q4

REPORT INFORMATION
  Report Type: 
  Country: None (occurrence: None)
  Receive Date: 20061016
  Receipt Date: 20061003
  Transmission Date: 20070319
  Serious: Yes (Other)
  Sender: FDA-Public Use
  Company Number: 2006115519

PATIENT
  Age: 64 Year
  Sex: Male

DRUGS (4)
  1. LYRICA [Suspect]
     Indication: GAIT DISTURBANCE
     Dosage: 450 MG (150 MG, 2 IN 1 D)
     Dates: start: 20060901
  2. CLONAZEPAM [Concomitant]
  3. ACETAMINOPHEN [Concomitant]
  4. MORPHINE SULFATE [Concomitant]

REACTIONS (3)
  - BLOOD CHOLESTEROL INCREASED [None]
  - BLOOD POTASSIUM DECREASED [None]
  - CONDITION AGGRAVATED [None]
